FAERS Safety Report 5114518-X (Version None)
Quarter: 2006Q3

REPORT INFORMATION
  Report Type: 
  Country: None (occurrence: None)
  Receive Date: 20060921
  Receipt Date: 20060907
  Transmission Date: 20061208
  Serious: Yes (Hospitalization)
  Sender: FDA-Public Use
  Company Number: CERZ-11316

PATIENT
  Age: 75 Year
  Sex: Female
  Weight: 82.3 kg

DRUGS (2)
  1. CEREZYME [Suspect]
     Indication: GAUCHER'S DISEASE
     Dosage: 5000 UNITS Q2WKS IV
     Dates: start: 20020101
  2. CEREZYME [Suspect]

REACTIONS (6)
  - BACK PAIN [None]
  - BONE PAIN [None]
  - CHEST PAIN [None]
  - ELECTROCARDIOGRAM ABNORMAL [None]
  - HYPERTENSION [None]
  - PALPITATIONS [None]
